FAERS Safety Report 19614996 (Version 5)
Quarter: 2023Q1

REPORT INFORMATION
  Report Type: Report from Study
  Country: CO (occurrence: CO)
  Receive Date: 20210727
  Receipt Date: 20230318
  Transmission Date: 20230418
  Serious: Yes (Hospitalization, Other)
  Sender: FDA-Public Use
  Company Number: CO-SHIRE-CO202003497

PATIENT
  Age: 28 Year
  Sex: Female
  Weight: 110 kg

DRUGS (3)
  1. HUMAN IMMUNOGLOBULIN G\HYALURONIDASE RECOMBINANT HUMAN [Suspect]
     Active Substance: HUMAN IMMUNOGLOBULIN G\HYALURONIDASE RECOMBINANT HUMAN
     Indication: Primary immunodeficiency syndrome
     Dosage: 25 GRAM
     Route: 065
  2. HUMAN IMMUNOGLOBULIN G\HYALURONIDASE RECOMBINANT HUMAN [Suspect]
     Active Substance: HUMAN IMMUNOGLOBULIN G\HYALURONIDASE RECOMBINANT HUMAN
     Indication: Immunodeficiency common variable
     Dosage: 30 GRAM, Q4WEEKS
     Route: 058
     Dates: start: 20191230
  3. HUMAN IMMUNOGLOBULIN G\HYALURONIDASE RECOMBINANT HUMAN [Suspect]
     Active Substance: HUMAN IMMUNOGLOBULIN G\HYALURONIDASE RECOMBINANT HUMAN
     Dosage: 30 GRAM, MONTHLY
     Route: 058
     Dates: start: 20191230

REACTIONS (10)
  - Suicidal ideation [Recovering/Resolving]
  - Depression [Not Recovered/Not Resolved]
  - Infusion site haemorrhage [Recovering/Resolving]
  - Weight increased [Unknown]
  - Fall [Not Recovered/Not Resolved]
  - Foot fracture [Recovering/Resolving]
  - Infusion site erythema [Recovering/Resolving]
  - Urinary tract infection [Recovering/Resolving]
  - Infusion site pruritus [Unknown]
  - Infusion site pain [Recovering/Resolving]

NARRATIVE: CASE EVENT DATE: 20200113
